FAERS Safety Report 13738901 (Version 1)
Quarter: 2017Q3

REPORT INFORMATION
  Report Type: Report from Study
  Country: US (occurrence: US)
  Receive Date: 20170710
  Receipt Date: 20170710
  Transmission Date: 20171127
  Serious: No
  Sender: FDA-Public Use
  Company Number: US-SAOL THERAPEUTICS-2017SAO00682

PATIENT
  Age: 62 Year
  Sex: Female

DRUGS (12)
  1. COMPOUNDED BACLOFEN [Suspect]
     Active Substance: BACLOFEN
     Dosage: 79.30 ?G, \DAY
     Route: 037
     Dates: start: 20170126
  2. COMPOUNDED BACLOFEN [Suspect]
     Active Substance: BACLOFEN
     Dosage: 164.45 ?G, \DAY
     Route: 037
     Dates: start: 20170126
  3. BUPIVACAINE. [Suspect]
     Active Substance: BUPIVACAINE
     Dosage: 8.223 MG, \DAY
     Route: 037
     Dates: start: 20170126
  4. COMPOUNDED BACLOFEN [Suspect]
     Active Substance: BACLOFEN
     Dosage: 199.94 ?G, \DAY
     Route: 037
     Dates: start: 20161201, end: 20170126
  5. DILAUDID [Suspect]
     Active Substance: HYDROMORPHONE HYDROCHLORIDE
     Dosage: 1.2006 MG, \DAY
     Route: 037
     Dates: start: 20161201, end: 20170126
  6. BUPIVACAINE. [Suspect]
     Active Substance: BUPIVACAINE
     Dosage: 3.602 MG, \DAY
     Route: 037
     Dates: start: 20161201, end: 20170126
  7. COMPOUNDED BACLOFEN [Suspect]
     Active Substance: BACLOFEN
     Dosage: 72.04 ?G, \DAY
     Route: 037
     Dates: start: 20161201, end: 20170126
  8. DILAUDID [Suspect]
     Active Substance: HYDROMORPHONE HYDROCHLORIDE
     Dosage: 3.3324 MG, \DAY
     Route: 037
     Dates: start: 20161201, end: 20170126
  9. DILAUDID [Suspect]
     Active Substance: HYDROMORPHONE HYDROCHLORIDE
     Dosage: 2.7408 MG, \DAY
     Route: 037
     Dates: start: 20170126
  10. BUPIVACAINE. [Suspect]
     Active Substance: BUPIVACAINE
     Dosage: 9.997 MG, \DAY
     Route: 037
     Dates: start: 20161201, end: 20170126
  11. DILAUDID [Suspect]
     Active Substance: HYDROMORPHONE HYDROCHLORIDE
     Dosage: 1.3217 MG, \DAY
     Route: 037
     Dates: start: 20170126
  12. BUPIVACAINE. [Suspect]
     Active Substance: BUPIVACAINE
     Dosage: 3.965 MG, \DAY
     Route: 037
     Dates: start: 20170126

REACTIONS (1)
  - Pain [Recovered/Resolved]

NARRATIVE: CASE EVENT DATE: 20170126
